FAERS Safety Report 16663891 (Version 1)
Quarter: 2019Q3

REPORT INFORMATION
  Report Type: Spontaneous
  Country: AT (occurrence: AT)
  Receive Date: 20190802
  Receipt Date: 20190802
  Transmission Date: 20191004
  Serious: Yes (Other)
  Sender: FDA-Public Use
  Company Number: AT-ASTRAZENECA-2019SF06840

PATIENT
  Age: 77 Year
  Sex: Female
  Weight: 62 kg

DRUGS (12)
  1. LASIX [Concomitant]
     Active Substance: FUROSEMIDE
     Dosage: 500 MG/50 ML NACL 0.9 % (0,5ML/H)
     Route: 042
  2. THIAMAZOLE [Suspect]
     Active Substance: METHIMAZOLE
     Dosage: 26 MG 1/4 TABLET EVERY SECOND DAY
     Route: 048
  3. PASSEDAN-NERVENTROPFEN [Suspect]
     Active Substance: HERBALS
     Indication: SLEEP DISORDER
     Dosage: 15 DROPS
     Route: 048
  4. RISPERDAL [Suspect]
     Active Substance: RISPERIDONE
     Dosage: 0.5MG UNKNOWN
     Route: 065
  5. AQUAPHORIL [Concomitant]
     Active Substance: XIPAMIDE
     Dosage: 1.0DF UNKNOWN
     Route: 048
  6. INHIXA [Concomitant]
     Active Substance: ENOXAPARIN SODIUM
  7. TEMESTA [Concomitant]
     Indication: RESTLESSNESS
     Dosage: 0.5 DF 1/2 VIAL UP TO 2 TIMES DAILY
     Route: 042
  8. CONCOR [Concomitant]
     Active Substance: BISOPROLOL FUMARATE
     Dosage: 2.5MG UNKNOWN
     Route: 048
  9. ADEMPAS [Concomitant]
     Active Substance: RIOCIGUAT
     Dosage: 7.5MG UNKNOWN
     Route: 048
  10. OPSUMIT [Suspect]
     Active Substance: MACITENTAN
     Indication: PULMONARY HYPERTENSION
     Dosage: 1.0DF UNKNOWN
     Route: 048
  11. SEROQUEL [Suspect]
     Active Substance: QUETIAPINE FUMARATE
     Dosage: 25 MG 1 DF (25MG ON DEMAND UP TO 4 TIMES DAILY AT THE MAXIMUM)
     Route: 048
  12. DOBUTAMIN [Concomitant]
     Active Substance: DOBUTAMINE HYDROCHLORIDE
     Dosage: 250 MG/50 ML NACL 0,9% (2,7ML/H)
     Route: 042

REACTIONS (1)
  - Pancytopenia [Unknown]

NARRATIVE: CASE EVENT DATE: 20190710
